FAERS Safety Report 4583912-8 (Version None)
Quarter: 2005Q1

REPORT INFORMATION
  Report Type: 
  Country: None (occurrence: None)
  Receive Date: 20050216
  Receipt Date: 20041103
  Transmission Date: 20050727
  Serious: No
  Sender: FDA-Public Use
  Company Number: US-GLAXOSMITHKLINE-A0532538A

PATIENT
  Age: 77 Year
  Sex: Male

DRUGS (8)
  1. AVODART [Suspect]
     Indication: BENIGN PROSTATIC HYPERPLASIA
     Dosage: .5MG PER DAY
     Route: 048
     Dates: start: 20041028
  2. FOLIC ACID [Concomitant]
  3. MULTIVITAMIN [Concomitant]
  4. MULTIVITAMIN [Concomitant]
  5. LOTREL [Concomitant]
  6. WARFARIN SODIUM [Concomitant]
  7. TOPROL-XL [Concomitant]
  8. LIPITOR [Concomitant]

REACTIONS (2)
  - DIZZINESS [None]
  - NAUSEA [None]
